FAERS Safety Report 4886471-5 (Version None)
Quarter: 2006Q1

REPORT INFORMATION
  Report Type: 
  Country: None (occurrence: None)
  Receive Date: 20060118
  Receipt Date: 20051229
  Transmission Date: 20060701
  Serious: No
  Sender: FDA-Public Use
  Company Number: US200511000810

PATIENT
  Age: 54 Year
  Sex: Female

DRUGS (21)
  1. CYMBALTA [Suspect]
     Indication: DEPRESSION
     Dosage: 60 MG  ; 120 MG
     Dates: start: 20050101
  2. CYMBALTA [Suspect]
     Indication: DEPRESSION
     Dosage: 60 MG  ; 120 MG
     Dates: start: 20050101
  3. LANTUS [Concomitant]
  4. HYDROCODONE BITARTRATE + ACETAMINOPHEN [Concomitant]
  5. ENALAPRIL [Concomitant]
  6. HYDROCHLOROTHIAZIDE [Concomitant]
  7. PRAVASTATIN [Concomitant]
  8. LEVOTHYROXINE SODIUM [Concomitant]
  9. ASPIRIN [Concomitant]
  10. NEXIUM [Concomitant]
  11. LASIX [Concomitant]
  12. ALBUTEROL [Concomitant]
  13. ATROVENT [Concomitant]
  14. ADVAIR DISKUS 100/50 [Concomitant]
  15. NAPROXEN [Concomitant]
  16. CLONAZEPAM [Concomitant]
  17. PRECOSE [Concomitant]
  18. SINGULAIR ^MERCK^ (MONTELUKAST SODIUM) [Concomitant]
  19. ZYRTEC /GFR/ (CETIRIZINE HYDROCHLORIDE) [Concomitant]
  20. NEURONTIN [Concomitant]
  21. FERROUS SULFATE TAB [Concomitant]

REACTIONS (4)
  - ALANINE AMINOTRANSFERASE INCREASED [None]
  - ASPARTATE AMINOTRANSFERASE INCREASED [None]
  - DIARRHOEA [None]
  - GASTROENTERITIS VIRAL [None]
